FAERS Safety Report 9597058 (Version 1)
Quarter: 2013Q4

REPORT INFORMATION
  Report Type: Spontaneous
  Country: US (occurrence: US)
  Receive Date: 20131004
  Receipt Date: 20131004
  Transmission Date: 20140711
  Serious: Yes (Other)
  Sender: FDA-Public Use
  Company Number: US-ACTAVIS-2013-17306

PATIENT
  Age: 5 Year
  Sex: Female

DRUGS (2)
  1. TOPOTECAN (ATLLC) [Suspect]
     Indication: BRAIN STEM GLIOMA
     Dosage: 0.08 ML/H AT A CONC OF 0.0667 MG/ML
  2. DEXAMETHASONE [Concomitant]
     Indication: BRAIN STEM GLIOMA
     Dosage: UNK
     Route: 065

REACTIONS (3)
  - Muscle spasticity [Not Recovered/Not Resolved]
  - Hypokinesia [Recovered/Resolved]
  - Karnofsky scale worsened [Unknown]
